FAERS Safety Report 25774672 (Version 6)
Quarter: 2025Q4

REPORT INFORMATION
  Report Type: Report from Study
  Country: EU (occurrence: EU)
  Receive Date: 20250908
  Receipt Date: 20251031
  Transmission Date: 20260118
  Serious: Yes (Death, Hospitalization, Other)
  Sender: PFIZER
  Company Number: EU-ABBVIE-6094045

PATIENT
  Age: 73 Year
  Sex: Male

DRUGS (32)
  1. CLINDAMYCIN HYDROCHLORIDE [Suspect]
     Active Substance: CLINDAMYCIN HYDROCHLORIDE
     Dosage: UNK
     Dates: start: 20250824
  2. CARBIDOPA\LEVODOPA [Suspect]
     Active Substance: CARBIDOPA\LEVODOPA
     Indication: Parkinson^s disease
     Dosage: MD 8.5 ML; CRD 5.0 ML/H; CRN 3.2 ML /H; ED: 3.5 ML (INTESTINAL GEL, ROA: PERCUTANEOUS J-TUBE)
     Dates: start: 20160509
  3. CARBIDOPA\LEVODOPA [Suspect]
     Active Substance: CARBIDOPA\LEVODOPA
     Dosage: MD 8.5 ML; CRT 4.4 ML/H; CRN 2.4 ML/H; ED 3.5 (INTESTINAL GEL, ROA: PERCUTANEOUS J-TUBE)
  4. CARBIDOPA\LEVODOPA [Suspect]
     Active Substance: CARBIDOPA\LEVODOPA
     Dosage: MD 8.5 ML, CRT 5.0 ML/H, CRN: 3.2 ML/H, ED 3.5 ML (INTESTINAL GEL, ROA:PERCUTANEOUS J-TUBE)
  5. PANTOPRAZOLE [Concomitant]
     Active Substance: PANTOPRAZOLE
     Dosage: UNK
  6. MOVICOL [Concomitant]
     Active Substance: POLYETHYLENE GLYCOL 3350\POTASSIUM CHLORIDE\SODIUM BICARBONATE\SODIUM CHLORIDE
     Dosage: UNK
  7. BISOPROLOL [Concomitant]
     Active Substance: BISOPROLOL
     Dosage: UNK
  8. PREGABALIN [Concomitant]
     Active Substance: PREGABALIN
     Dosage: UNK
  9. DARIFENACIN HYDROBROMIDE [Concomitant]
     Active Substance: DARIFENACIN HYDROBROMIDE
     Dosage: UNK
  10. NEUPRO [Concomitant]
     Active Substance: ROTIGOTINE
     Dosage: PATCH
  11. AMANTADINE [Concomitant]
     Active Substance: AMANTADINE
     Dosage: UNK
  12. METFORMIN [Concomitant]
     Active Substance: METFORMIN HYDROCHLORIDE
     Dosage: UNK
  13. DREISAFER [Concomitant]
     Dosage: UNK
  14. OXAZEPAM [Concomitant]
     Active Substance: OXAZEPAM
     Dosage: UNK
  15. RIVOTRIL [Concomitant]
     Active Substance: CLONAZEPAM
     Dosage: UNK
  16. CANDESARTAN [Concomitant]
     Active Substance: CANDESARTAN
     Dosage: UNK
  17. AMLODIPINE [Concomitant]
     Active Substance: AMLODIPINE BESYLATE
     Dosage: UNK
  18. NABIXIMOLS [Concomitant]
     Active Substance: NABIXIMOLS
     Dosage: SPRAY
  19. MAGNESIUM ASPARTATE [Concomitant]
     Active Substance: MAGNESIUM ASPARTATE
     Dosage: UNK
  20. SIMVASTATIN [Concomitant]
     Active Substance: SIMVASTATIN
     Dosage: UNK
  21. SERTRALINE [Concomitant]
     Active Substance: SERTRALINE HYDROCHLORIDE
     Dosage: UNK
  22. MIRTAZAPINE [Concomitant]
     Active Substance: MIRTAZAPINE
     Dosage: UNK
  23. LEVOTHYROXINE [Concomitant]
     Active Substance: LEVOTHYROXINE
     Dosage: UNK
  24. ZOPICLONE [Concomitant]
     Active Substance: ZOPICLONE
     Dosage: UNK
  25. TAMSULOSIN [Concomitant]
     Active Substance: TAMSULOSIN
  26. TAVOR (LORAZEPAM) [Concomitant]
     Active Substance: LORAZEPAM
     Dosage: UNK
  27. POLYETHYLENE GLYCOLS [Concomitant]
     Active Substance: POLYETHYLENE GLYCOLS
  28. VITAMIN B COMPLEX [ASCORBIC ACID;VITAMIN B COMPLEX] [Concomitant]
     Dosage: UNK
  29. LEVOTHYROXINE [Concomitant]
     Active Substance: LEVOTHYROXINE
     Dosage: UNK
  30. OXYCODONE [Concomitant]
     Active Substance: OXYCODONE
     Dosage: UNK
  31. OXYCODONE [Concomitant]
     Active Substance: OXYCODONE
     Dosage: UNK
  32. ASPIRIN [Concomitant]
     Active Substance: ASPIRIN
     Dosage: UNK

REACTIONS (18)
  - Pneumonia [Fatal]
  - Nasopharyngitis [Unknown]
  - Drug intolerance [Not Recovered/Not Resolved]
  - Decubitus ulcer [Not Recovered/Not Resolved]
  - Secretion discharge [Not Recovered/Not Resolved]
  - Hypokinesia [Recovering/Resolving]
  - Asthenia [Not Recovered/Not Resolved]
  - Akinesia [Unknown]
  - Pyrexia [Not Recovered/Not Resolved]
  - Dysarthria [Not Recovered/Not Resolved]
  - Somnolence [Not Recovered/Not Resolved]
  - Nosocomial infection [Unknown]
  - Hyperkinesia [Not Recovered/Not Resolved]
  - Dyskinesia [Not Recovered/Not Resolved]
  - Psychomotor hyperactivity [Not Recovered/Not Resolved]
  - General physical health deterioration [Not Recovered/Not Resolved]
  - Weight decreased [Not Recovered/Not Resolved]
  - Contraindicated product administered [Unknown]

NARRATIVE: CASE EVENT DATE: 20250101
